FAERS Safety Report 18855212 (Version 1)
Quarter: 2021Q1

REPORT INFORMATION
  Report Type: Spontaneous
  Country: JP (occurrence: JP)
  Receive Date: 20210205
  Receipt Date: 20210205
  Transmission Date: 20210420
  Serious: Yes (Life-Threatening)
  Sender: FDA-Public Use
  Company Number: JP-ASTRAZENECA-2021A030465

PATIENT
  Age: 73 Year
  Sex: Male

DRUGS (4)
  1. CARBOPLATIN. [Concomitant]
     Active Substance: CARBOPLATIN
     Indication: SMALL CELL LUNG CANCER
     Dosage: AUC 6 EVERY THREE WEEKS
     Route: 065
  2. ETOPOSIDE. [Concomitant]
     Active Substance: ETOPOSIDE
     Indication: SMALL CELL LUNG CANCER
     Dosage: 100 MG/M 2 MILLIGRAM(S)/SQ. DAY 1, 2, AND 3 OF EACH CYCLE, DOSE UNKNOWN
     Route: 065
  3. IMFINZI [Suspect]
     Active Substance: DURVALUMAB
     Indication: SMALL CELL LUNG CANCER
     Dosage: EVERY THREE WEEKS
     Route: 041
  4. IMFINZI [Suspect]
     Active Substance: DURVALUMAB
     Indication: SMALL CELL LUNG CANCER
     Dosage: EVERY FOUR WEEKS
     Route: 041

REACTIONS (2)
  - Neutrophil count decreased [Unknown]
  - Blood urea increased [Unknown]
